FAERS Safety Report 8473822 (Version 5)
Quarter: 2014Q1

REPORT INFORMATION
  Report Type: Report from Study
  Country: DE (occurrence: DE)
  Receive Date: 20120323
  Receipt Date: 20140130
  Transmission Date: 20141002
  Serious: Yes (Death, Hospitalization)
  Sender: FDA-Public Use
  Company Number: DE-PFIZER INC-2012072082

PATIENT
  Age: 70 Year
  Sex: Male
  Weight: 74 kg

DRUGS (6)
  1. SUNITINIB MALATE [Suspect]
     Indication: RENAL CANCER
     Dosage: 50 MG, DAILY
     Route: 048
     Dates: start: 20120210, end: 20120221
  2. BISOPROLOL [Concomitant]
     Dosage: 5 MG, 1X/DAY
  3. RAMILICH COMP [Concomitant]
     Dosage: 5 / 25 ONCE DAILY
  4. THYRONAJOD [Concomitant]
     Dosage: 100 UG, 1X/DAY
  5. FELOCOR [Concomitant]
     Dosage: 5 MG, 1X/DAY
  6. SAROTEN [Concomitant]
     Dosage: UNK

REACTIONS (2)
  - Pneumonia [Fatal]
  - Sepsis [Fatal]
